FAERS Safety Report 7465093-6 (Version None)
Quarter: 2011Q2

REPORT INFORMATION
  Report Type: 
  Country: None (occurrence: None)
  Receive Date: 20110509
  Receipt Date: 20110426
  Transmission Date: 20111010
  Serious: Yes (Hospitalization, Other)
  Sender: FDA-Public Use
  Company Number: GB-JNJFOC-20100408230

PATIENT
  Sex: Female
  Weight: 106 kg

DRUGS (8)
  1. CALCICHEW [Concomitant]
  2. PARACETAMOL [Concomitant]
  3. METHOTREXATE [Concomitant]
  4. REMICADE [Suspect]
     Indication: RHEUMATOID ARTHRITIS
     Route: 042
  5. PREDNISOLONE [Concomitant]
  6. CODEINE [Concomitant]
  7. DICLOFENAC [Concomitant]
  8. FOLIC ACID [Concomitant]

REACTIONS (1)
  - BASAL CELL CARCINOMA [None]
